FAERS Safety Report 13528862 (Version 2)
Quarter: 2017Q2

REPORT INFORMATION
  Report Type: Spontaneous
  Country: US (occurrence: US)
  Receive Date: 20170509
  Receipt Date: 20170615
  Transmission Date: 20170830
  Serious: No
  Sender: FDA-Public Use
  Company Number: US-GE HEALTHCARE LIFE SCIENCES-2017CSU000977

PATIENT

DRUGS (1)
  1. DATSCAN [Suspect]
     Active Substance: IODINE\IOFLUPANE I-123
     Indication: PARKINSON^S DISEASE
     Dosage: UNK UNK, SINGLE
     Route: 042
     Dates: start: 20160728, end: 20160728

REACTIONS (2)
  - No adverse event [Recovered/Resolved]
  - False negative investigation result [Recovered/Resolved]

NARRATIVE: CASE EVENT DATE: 20160728
